FAERS Safety Report 7327312-6 (Version None)
Quarter: 2011Q1

REPORT INFORMATION
  Report Type: 
  Country: None (occurrence: None)
  Receive Date: 20110302
  Receipt Date: 20110223
  Transmission Date: 20110831
  Serious: Yes (Hospitalization)
  Sender: FDA-Public Use
  Company Number: JP-GILEAD-2011-0036917

PATIENT
  Age: 50 Year
  Sex: Male

DRUGS (5)
  1. KALETRA [Concomitant]
     Indication: HIV INFECTION
  2. TRUVADA [Suspect]
  3. RALTEGRAVIR [Suspect]
     Indication: HIV INFECTION
  4. BACTRIM [Concomitant]
  5. PENTAMIDINE ISETHIONATE [Concomitant]

REACTIONS (10)
  - HYPOGLYCAEMIA [None]
  - ADRENOCORTICAL INSUFFICIENCY ACUTE [None]
  - PYREXIA [None]
  - CONDITION AGGRAVATED [None]
  - HYPOTENSION [None]
  - IMMUNE RECONSTITUTION SYNDROME [None]
  - CYTOMEGALOVIRUS INFECTION [None]
  - ALTERED STATE OF CONSCIOUSNESS [None]
  - HYPONATRAEMIA [None]
  - PNEUMOCYSTIS JIROVECI PNEUMONIA [None]
